FAERS Safety Report 24538932 (Version 1)
Quarter: 2024Q4

REPORT INFORMATION
  Report Type: Spontaneous
  Country: ES (occurrence: ES)
  Receive Date: 20241023
  Receipt Date: 20241023
  Transmission Date: 20250114
  Serious: Yes (Other)
  Sender: SANDOZ
  Company Number: ES-NOVPHSZ-PHHY2019ES165533

PATIENT
  Age: 6 Year
  Sex: Male

DRUGS (2)
  1. METHYLPHENIDATE HYDROCHLORIDE [Suspect]
     Active Substance: METHYLPHENIDATE HYDROCHLORIDE
     Indication: Attention deficit hyperactivity disorder
     Dosage: 20 MG, Q24H (SE COMENZO CON 10 MG, SE SUBIO A 20 Y SE BAJO DE NUEVO A 10, DESPUES SE RETIRO)
     Route: 048
     Dates: start: 20161216, end: 20170717
  2. METHYLPHENIDATE HYDROCHLORIDE [Suspect]
     Active Substance: METHYLPHENIDATE HYDROCHLORIDE
     Indication: Attention deficit hyperactivity disorder
     Dosage: 5 MG, Q24H
     Route: 048
     Dates: start: 201703, end: 201707

REACTIONS (1)
  - Trichotillomania [Recovered/Resolved]

NARRATIVE: CASE EVENT DATE: 20170301
